FAERS Safety Report 20099217 (Version 3)
Quarter: 2021Q4

REPORT INFORMATION
  Report Type: Spontaneous
  Country: CN (occurrence: CN)
  Receive Date: 20211122
  Receipt Date: 20211208
  Transmission Date: 20220304
  Serious: Yes (Other)
  Sender: FDA-Public Use
  Company Number: CN-BEH-2021138403

PATIENT
  Age: 80 Year
  Sex: Female

DRUGS (26)
  1. ALBURX [Suspect]
     Active Substance: ALBUMIN HUMAN
     Indication: Hypoproteinaemia
     Dosage: 10 GRAM
     Route: 041
     Dates: start: 20211112, end: 20211112
  2. RABEPRAZOLE [Concomitant]
     Active Substance: RABEPRAZOLE
     Indication: Premedication
  3. SODIUM CHLORIDE [Concomitant]
     Active Substance: SODIUM CHLORIDE
     Dosage: 1 BOTTLE 10ML/H
     Route: 065
     Dates: start: 20211108
  4. SODIUM CHLORIDE [Concomitant]
     Active Substance: SODIUM CHLORIDE
     Dosage: 100 MILLILITER, BID
     Route: 065
     Dates: start: 20211109
  5. SODIUM CHLORIDE [Concomitant]
     Active Substance: SODIUM CHLORIDE
     Dosage: 1 BOTTLE FLUSHING TUBE, TOT
     Route: 065
     Dates: start: 20211111
  6. SODIUM CHLORIDE [Concomitant]
     Active Substance: SODIUM CHLORIDE
     Dosage: 1 BOTTLE, TOT
     Route: 065
     Dates: start: 20211112
  7. ESOMEPRAZOLE SODIUM [Concomitant]
     Active Substance: ESOMEPRAZOLE SODIUM
     Dosage: 40 MILLIGRAM, TOT
     Route: 065
     Dates: start: 20211108
  8. RABEPRAZOLE SODIUM [Concomitant]
     Active Substance: RABEPRAZOLE SODIUM
     Dosage: 20 MILLIGRAM, BID
     Route: 065
     Dates: start: 20211109
  9. DEXTROSE [Concomitant]
     Active Substance: DEXTROSE
     Dosage: 50 MILLILITER, TOT
     Route: 065
     Dates: start: 20211109
  10. DEXTROSE [Concomitant]
     Active Substance: DEXTROSE
     Dosage: 50 MILLILITER, TOT
     Route: 065
     Dates: start: 20211110
  11. DEXTROSE [Concomitant]
     Active Substance: DEXTROSE
     Dosage: 100 MILLILITER, TOT
     Route: 041
     Dates: start: 20211112
  12. SOMATOSTATIN [Concomitant]
     Active Substance: SOMATOSTATIN
     Dosage: 12 MILLIGRAM, TOT
     Route: 065
     Dates: start: 20211109
  13. SOMATOSTATIN [Concomitant]
     Active Substance: SOMATOSTATIN
     Dosage: 12 MILLIGRAM, TOT
     Route: 065
     Dates: start: 20211110
  14. ACYCLOVIR [Concomitant]
     Active Substance: ACYCLOVIR
     Dosage: 0.1 GRAM, TID
     Route: 065
     Dates: start: 20211110
  15. DROPERIDOL [Concomitant]
     Active Substance: DROPERIDOL
     Dosage: 5 MILLIGRAM, TOT
     Route: 030
     Dates: start: 20211111
  16. DROPERIDOL [Concomitant]
     Active Substance: DROPERIDOL
     Dosage: 5 MILLIGRAM, TOT
     Route: 030
     Dates: start: 20211111
  17. FAT EMULSION NOS [Concomitant]
     Active Substance: EGG PHOSPHOLIPIDS\SAFFLOWER OIL\SOYBEAN OIL
     Dosage: 250 MILLILITER, QD
     Route: 065
     Dates: start: 20211111
  18. ALPRAZOLAM [Concomitant]
     Active Substance: ALPRAZOLAM
     Dosage: 0.4 MILLIGRAM, TOT
     Route: 048
     Dates: start: 20211111
  19. CALCIUM GLUCONATE [Concomitant]
     Active Substance: CALCIUM GLUCONATE
     Dosage: 2 GRAM, TOT
     Route: 041
     Dates: start: 20211112
  20. DEXAMETHASONE SODIUM PHOSPHATE [Concomitant]
     Active Substance: DEXAMETHASONE SODIUM PHOSPHATE
     Dosage: 5 MILLIGRAM, QD
     Route: 042
     Dates: start: 20211112
  21. DEXTROSE\SODIUM CHLORIDE [Concomitant]
     Active Substance: DEXTROSE\SODIUM CHLORIDE
     Dosage: 500 MILLILITER, TOT
     Route: 041
     Dates: start: 20211112
  22. DEXTROSE\SODIUM CHLORIDE [Concomitant]
     Active Substance: DEXTROSE\SODIUM CHLORIDE
     Dosage: 500 MILLILITER, TOT
     Route: 041
     Dates: start: 20211112
  23. LEVAMLODIPINE BESYLATE [Concomitant]
     Active Substance: LEVAMLODIPINE BESYLATE
     Indication: Blood pressure management
  24. LEVAMLODIPINE BESYLATE [Concomitant]
     Active Substance: LEVAMLODIPINE BESYLATE
     Indication: Blood pressure management
  25. INSULIN NOS [Concomitant]
     Active Substance: INSULIN NOS
  26. INSULIN GLARGINE [Concomitant]
     Active Substance: INSULIN GLARGINE
     Dosage: 6 INTERNATIONAL UNIT
     Route: 058

REACTIONS (2)
  - Hyperpyrexia [Recovering/Resolving]
  - Chills [Recovering/Resolving]

NARRATIVE: CASE EVENT DATE: 20211112
